FAERS Safety Report 15058972 (Version 1)
Quarter: 2018Q2

REPORT INFORMATION
  Report Type: Spontaneous
  Country: US (occurrence: US)
  Receive Date: 20180605
  Receipt Date: 20180605
  Transmission Date: 20180711
  Serious: Yes (Hospitalization)
  Sender: FDA-Public Use
  Company Number: None

PATIENT
  Age: 64 Year
  Sex: Female

DRUGS (16)
  1. ALLOPURINOL. [Concomitant]
     Active Substance: ALLOPURINOL
  2. NASAL SPR [Concomitant]
  3. MULTIVITAMIN [Concomitant]
     Active Substance: VITAMINS
  4. TIKOSYN [Concomitant]
     Active Substance: DOFETILIDE
  5. XYZAL [Concomitant]
     Active Substance: LEVOCETIRIZINE DIHYDROCHLORIDE
  6. LETAIRIS [Concomitant]
     Active Substance: AMBRISENTAN
  7. LIPITOR [Concomitant]
     Active Substance: ATORVASTATIN CALCIUM
  8. TYLENOL [Concomitant]
     Active Substance: ACETAMINOPHEN
  9. COUMADIN [Concomitant]
     Active Substance: WARFARIN SODIUM
  10. IRON [Concomitant]
     Active Substance: IRON
  11. FUROSEMIDE. [Concomitant]
     Active Substance: FUROSEMIDE
  12. SILDENAFIL. [Suspect]
     Active Substance: SILDENAFIL
     Indication: PULMONARY ARTERIAL HYPERTENSION
     Route: 048
     Dates: start: 20140203
  13. KLOR-CON M10 [Concomitant]
     Active Substance: POTASSIUM CHLORIDE
  14. RANITIDINE. [Concomitant]
     Active Substance: RANITIDINE
  15. VELETRI [Concomitant]
     Active Substance: EPOPROSTENOL
  16. VITAMIN C [Concomitant]
     Active Substance: ASCORBIC ACID

REACTIONS (2)
  - Swelling [None]
  - Atrial fibrillation [None]

NARRATIVE: CASE EVENT DATE: 20180430
